FAERS Safety Report 25548708 (Version 1)
Quarter: 2025Q3

REPORT INFORMATION
  Report Type: Report from Study
  Country: EU (occurrence: EU)
  Receive Date: 20250714
  Receipt Date: 20250714
  Transmission Date: 20251020
  Serious: Yes (Other)
  Sender: MYLAN
  Company Number: EU-ETHYPHARM-2025000569

PATIENT
  Age: 49 Year
  Sex: Male

DRUGS (20)
  1. REMIFENTANIL [Interacting]
     Active Substance: REMIFENTANIL
     Indication: Anaesthesia
  2. REMIFENTANIL [Interacting]
     Active Substance: REMIFENTANIL
     Route: 042
  3. REMIFENTANIL [Interacting]
     Active Substance: REMIFENTANIL
     Route: 042
  4. REMIFENTANIL [Interacting]
     Active Substance: REMIFENTANIL
  5. FENTANYL [Interacting]
     Active Substance: FENTANYL
     Indication: Anaesthesia
  6. FENTANYL [Interacting]
     Active Substance: FENTANYL
     Route: 042
  7. FENTANYL [Interacting]
     Active Substance: FENTANYL
     Route: 042
  8. FENTANYL [Interacting]
     Active Substance: FENTANYL
  9. AMITRIPTYLINE [Interacting]
     Active Substance: AMITRIPTYLINE
     Indication: Headache
     Dosage: 75 MILLIGRAM, QD
  10. AMITRIPTYLINE [Interacting]
     Active Substance: AMITRIPTYLINE
     Dosage: 75 MILLIGRAM, QD
     Route: 042
  11. AMITRIPTYLINE [Interacting]
     Active Substance: AMITRIPTYLINE
     Dosage: 75 MILLIGRAM, QD
     Route: 042
  12. AMITRIPTYLINE [Interacting]
     Active Substance: AMITRIPTYLINE
     Dosage: 75 MILLIGRAM, QD
  13. PROPOFOL [Interacting]
     Active Substance: PROPOFOL
     Indication: Anaesthesia
  14. PROPOFOL [Interacting]
     Active Substance: PROPOFOL
     Route: 042
  15. PROPOFOL [Interacting]
     Active Substance: PROPOFOL
     Route: 042
  16. PROPOFOL [Interacting]
     Active Substance: PROPOFOL
  17. SEVOFLURANE [Interacting]
     Active Substance: SEVOFLURANE
     Indication: Anaesthesia
  18. SEVOFLURANE [Interacting]
     Active Substance: SEVOFLURANE
     Route: 042
  19. SEVOFLURANE [Interacting]
     Active Substance: SEVOFLURANE
     Route: 042
  20. SEVOFLURANE [Interacting]
     Active Substance: SEVOFLURANE

REACTIONS (3)
  - Drug interaction [Unknown]
  - Hypotension [Unknown]
  - Rash erythematous [Unknown]
